FAERS Safety Report 4781645-6 (Version None)
Quarter: 2005Q3

REPORT INFORMATION
  Report Type: 
  Country: None (occurrence: None)
  Receive Date: 20050927
  Receipt Date: 20050916
  Transmission Date: 20060218
  Serious: Yes (Life-Threatening)
  Sender: FDA-Public Use
  Company Number: 05H-124-0302496-00

PATIENT
  Age: 25 Year
  Sex: Female
  Weight: 45 kg

DRUGS (6)
  1. PENTOTHAL [Suspect]
     Dosage: INTRAVENOUS
     Route: 042
  2. ISONIAZID [Concomitant]
  3. RIFAMPICIN [Concomitant]
  4. ETHAMBUTOL (ETHAMBUTOL) [Concomitant]
  5. PYRAZINAMIDE [Concomitant]
  6. ATRACURIUM BESYLATE [Concomitant]

REACTIONS (2)
  - RESUSCITATION [None]
  - VENTRICULAR FIBRILLATION [None]
